FAERS Safety Report 9101834 (Version 1)
Quarter: 2013Q1

REPORT INFORMATION
  Report Type: Spontaneous
  Country: US (occurrence: US)
  Receive Date: 20130218
  Receipt Date: 20130218
  Transmission Date: 20140127
  Serious: No
  Sender: FDA-Public Use
  Company Number: US-009507513-1302USA007504

PATIENT
  Age: 20 Year
  Sex: Female
  Weight: 48.73 kg

DRUGS (1)
  1. IMPLANON [Suspect]
     Indication: CONTRACEPTION
     Dosage: EVERY 3 YEARS
     Route: 059
     Dates: start: 2011

REACTIONS (4)
  - Stress [Unknown]
  - Chest pain [Unknown]
  - Metrorrhagia [Not Recovered/Not Resolved]
  - Mood swings [Unknown]
